FAERS Safety Report 10225490 (Version 1)
Quarter: 2014Q2

REPORT INFORMATION
  Report Type: Spontaneous
  Country: US (occurrence: US)
  Receive Date: 20140609
  Receipt Date: 20140609
  Transmission Date: 20141212
  Serious: No
  Sender: FDA-Public Use
  Company Number: US-ASTELLAS-2014US000892

PATIENT
  Age: 50 Year
  Sex: Male

DRUGS (11)
  1. PROGRAF [Suspect]
     Indication: GRAFT VERSUS HOST DISEASE IN GASTROINTESTINAL TRACT
     Route: 048
     Dates: start: 20130820
  2. PROGRAF [Suspect]
     Indication: GRAFT VERSUS HOST DISEASE
     Route: 042
     Dates: start: 20130808, end: 20130820
  3. OCTREOTIDE [Concomitant]
     Indication: DIARRHOEA
     Route: 058
     Dates: start: 20130807
  4. OCTREOTIDE [Concomitant]
     Route: 058
     Dates: start: 20001224, end: 20131226
  5. OCTREOTIDE [Concomitant]
     Route: 042
     Dates: start: 20130729, end: 20130731
  6. DELTASONE                          /00016001/ [Concomitant]
     Indication: PROPHYLAXIS AGAINST GRAFT VERSUS HOST DISEASE
     Dosage: 5-10 MG, UNKNOWN/D
     Route: 048
     Dates: start: 20121227
  7. DIPHENOXYLATE/ATROPINE [Concomitant]
     Indication: PRODUCT USED FOR UNKNOWN INDICATION
     Route: 048
     Dates: start: 20130728
  8. CLOBETASOL [Concomitant]
     Indication: PRODUCT USED FOR UNKNOWN INDICATION
     Route: 061
     Dates: start: 20130728, end: 20130906
  9. PSYLLIUM                           /01328801/ [Concomitant]
     Indication: PRODUCT USED FOR UNKNOWN INDICATION
     Dosage: 3 PACKETS, UNKNOWN/D
     Route: 048
     Dates: start: 20130731, end: 20130821
  10. METHYLPREDNISOLONE [Concomitant]
     Indication: PRODUCT USED FOR UNKNOWN INDICATION
     Route: 042
     Dates: start: 20130807, end: 20130820
  11. AVLOSULFON [Concomitant]
     Indication: PRODUCT USED FOR UNKNOWN INDICATION
     Route: 048
     Dates: start: 20130218

REACTIONS (1)
  - Off label use [Unknown]
